FAERS Safety Report 5201941-8 (Version None)
Quarter: 2007Q1

REPORT INFORMATION
  Report Type: 
  Country: None (occurrence: None)
  Receive Date: 20070104
  Receipt Date: 20061222
  Transmission Date: 20070707
  Serious: Yes (Other)
  Sender: FDA-Public Use
  Company Number: 151242ISR

PATIENT
  Age: 63 Year
  Sex: Male

DRUGS (1)
  1. ATENOLOL [Suspect]
     Indication: HYPERTENSION
     Dosage: 60 MG (50 MG, 1 IN 1 D)
     Dates: start: 19991201

REACTIONS (1)
  - WEIGHT INCREASED [None]
